FAERS Safety Report 9516611 (Version 1)
Quarter: 2013Q3

REPORT INFORMATION
  Report Type: Spontaneous
  Country: US (occurrence: US)
  Receive Date: 20130911
  Receipt Date: 20130911
  Transmission Date: 20140515
  Serious: No
  Sender: FDA-Public Use
  Company Number: US-BAYER-2013-108033

PATIENT
  Sex: Female

DRUGS (1)
  1. CLIMARA [Suspect]
     Dosage: 0.05 MG, UNK
     Dates: start: 201302

REACTIONS (2)
  - Product adhesion issue [Recovered/Resolved]
  - Rash [Recovered/Resolved]
